FAERS Safety Report 25599935 (Version 1)
Quarter: 2025Q3

REPORT INFORMATION
  Report Type: Other
  Country: EU (occurrence: EU)
  Receive Date: 20250724
  Receipt Date: 20250724
  Transmission Date: 20251020
  Serious: Yes (Hospitalization)
  Sender: ZYDUS PHARM
  Company Number: None

PATIENT

DRUGS (5)
  1. LEVOFLOXACIN [Suspect]
     Active Substance: LEVOFLOXACIN
     Indication: Pneumonia
     Route: 048
     Dates: start: 20250422, end: 20250427
  2. CLINDAMYCIN [Suspect]
     Active Substance: CLINDAMYCIN
     Indication: Pneumonia
     Route: 042
     Dates: start: 20250424, end: 20250427
  3. PREDNISONE [Concomitant]
     Active Substance: PREDNISONE
     Indication: Pneumonia
     Route: 048
     Dates: start: 20250422, end: 20250424
  4. QUETIAPINE [Concomitant]
     Active Substance: QUETIAPINE
     Indication: Mixed anxiety and depressive disorder
     Route: 048
     Dates: start: 202307
  5. VENLAFAXINE HYDROCHLORIDE [Concomitant]
     Active Substance: VENLAFAXINE HYDROCHLORIDE
     Indication: Mixed anxiety and depressive disorder
     Route: 048
     Dates: start: 202307

REACTIONS (2)
  - Coagulopathy [Unknown]
  - Hepatocellular injury [Recovering/Resolving]

NARRATIVE: CASE EVENT DATE: 20250426
